FAERS Safety Report 22261007 (Version 2)
Quarter: 2023Q2

REPORT INFORMATION
  Report Type: Spontaneous
  Country: US (occurrence: US)
  Receive Date: 20230427
  Receipt Date: 20230503
  Transmission Date: 20230721
  Serious: No
  Sender: FDA-Public Use
  Company Number: US-PFIZER INC-202300166672

PATIENT
  Age: 73 Year
  Sex: Female

DRUGS (1)
  1. PREMARIN [Suspect]
     Active Substance: ESTROGENS, CONJUGATED
     Indication: Haemorrhoids
     Dosage: UNK
     Route: 067

REACTIONS (6)
  - Vulvovaginal swelling [Unknown]
  - Constipation [Not Recovered/Not Resolved]
  - Breast pain [Unknown]
  - Headache [Unknown]
  - Breast enlargement [Unknown]
  - Off label use [Unknown]
